FAERS Safety Report 7830227-8 (Version None)
Quarter: 2011Q4

REPORT INFORMATION
  Report Type: 
  Country: None (occurrence: None)
  Receive Date: 20111021
  Receipt Date: 20111018
  Transmission Date: 20120403
  Serious: Yes (Death, Hospitalization, Other)
  Sender: FDA-Public Use
  Company Number: PHHY2011BR91941

PATIENT
  Age: 81 Year
  Sex: Male

DRUGS (6)
  1. ALFAEPOETINA [Concomitant]
     Route: 048
  2. EXJADE [Suspect]
     Indication: RED BLOOD CELL COUNT DECREASED
     Dosage: 1 DF (250 MG) DAILY
     Route: 048
     Dates: start: 20110802
  3. PROSCAR [Concomitant]
     Route: 048
  4. EXJADE [Suspect]
     Dosage: 2 DF (250 MG) DAILY
     Route: 048
     Dates: start: 20110816
  5. CLINDAMYCIN HCL [Concomitant]
     Route: 048
  6. CALCORT [Concomitant]
     Route: 048

REACTIONS (5)
  - BRONCHOPNEUMONIA [None]
  - LEUKAEMIA [None]
  - RED BLOOD CELL COUNT DECREASED [None]
  - CARDIAC FAILURE [None]
  - RESPIRATORY FAILURE [None]
